FAERS Safety Report 24388441 (Version 1)
Quarter: 2024Q4

REPORT INFORMATION
  Report Type: Spontaneous
  Country: US (occurrence: None)
  Receive Date: 20241001
  Receipt Date: 20241001
  Transmission Date: 20250114
  Serious: Yes (Life-Threatening, Other)
  Sender: Public
  Company Number: None

PATIENT
  Age: 42 Year
  Sex: Female
  Weight: 162.9 kg

DRUGS (37)
  1. XPHOZAH [Suspect]
     Active Substance: TENAPANOR HYDROCHLORIDE
     Indication: Hyperphosphataemia
     Dosage: OTHER QUANTITY : 60 TABLET(S);?FREQUENCY : TWICE A DAY;?
     Route: 048
     Dates: start: 20240803, end: 20240811
  2. HEPARIN [Suspect]
     Active Substance: HEPARIN SODIUM
  3. Mirena IUD [Concomitant]
  4. GORE? ACUSEAL Vascular Graft (LFA) [Concomitant]
  5. Stent L Cephalic Arch [Concomitant]
  6. Stent AVG anastomosis [Concomitant]
  7. ALBUTEROL [Concomitant]
     Active Substance: ALBUTEROL
  8. ALISKIREN [Concomitant]
     Active Substance: ALISKIREN
  9. CALCITRIOL [Concomitant]
     Active Substance: CALCITRIOL
  10. CLONIDINE [Concomitant]
     Active Substance: CLONIDINE
  11. DIPHENHYDRAMINE [Concomitant]
     Active Substance: DIPHENHYDRAMINE
  12. ELIQUIS [Concomitant]
     Active Substance: APIXABAN
  13. FLONASE [Concomitant]
     Active Substance: FLUTICASONE PROPIONATE
  14. FLOVENT [Concomitant]
     Active Substance: FLUTICASONE PROPIONATE
  15. GLIPIZIDE [Concomitant]
     Active Substance: GLIPIZIDE
  16. HYDROXYZINE [Concomitant]
     Active Substance: HYDROXYZINE HYDROCHLORIDE
  17. KETOTIFEN [Concomitant]
     Active Substance: KETOTIFEN
  18. fumarate ocular [Concomitant]
  19. LANTUS SOLOSTAR [Concomitant]
     Active Substance: INSULIN GLARGINE
  20. LEVOTHYROXINE [Concomitant]
     Active Substance: LEVOTHYROXINE
  21. MEDROXYPROGESTERONE [Concomitant]
     Active Substance: MEDROXYPROGESTERONE
  22. METOPROLOL [Concomitant]
     Active Substance: METOPROLOL
  23. MONTELUKAST [Concomitant]
     Active Substance: MONTELUKAST
  24. ONDANSETRON [Concomitant]
     Active Substance: ONDANSETRON
  25. RENVELA [Concomitant]
     Active Substance: SEVELAMER CARBONATE
  26. RIZATRIPTAN [Concomitant]
     Active Substance: RIZATRIPTAN
  27. ROSUVASTATIN [Concomitant]
     Active Substance: ROSUVASTATIN
  28. SERTRALINE [Concomitant]
     Active Substance: SERTRALINE HYDROCHLORIDE
  29. SODIUM BICARBONATE [Concomitant]
     Active Substance: SODIUM BICARBONATE
  30. ProRenal+D Kidney Multivitamin with Omega 3 [Concomitant]
  31. B50 Complex Vitamin [Concomitant]
  32. BIOTIN [Concomitant]
     Active Substance: BIOTIN
  33. VITAMIN D3 [Concomitant]
     Active Substance: CHOLECALCIFEROL
  34. AFRIN [Concomitant]
     Active Substance: OXYMETAZOLINE
  35. DIPHENHYDRAMINE [Concomitant]
     Active Substance: DIPHENHYDRAMINE
  36. Ketotifen fumarate optical [Concomitant]
  37. Metamucil Fiber Caps [Concomitant]

REACTIONS (13)
  - Diarrhoea [None]
  - Muscle spasms [None]
  - Dehydration [None]
  - Abdominal pain [None]
  - Dialysis [None]
  - Nausea [None]
  - Heavy menstrual bleeding [None]
  - Haemorrhage [None]
  - Endometrial neoplasm [None]
  - Device expulsion [None]
  - Abnormal uterine bleeding [None]
  - Gait disturbance [None]
  - Dyspnoea [None]

NARRATIVE: CASE EVENT DATE: 20240818
